FAERS Safety Report 7749005-3 (Version None)
Quarter: 2011Q3

REPORT INFORMATION
  Report Type: 
  Country: None (occurrence: None)
  Receive Date: 20110909
  Receipt Date: 20110830
  Transmission Date: 20111222
  Serious: Yes (Hospitalization)
  Sender: FDA-Public Use
  Company Number: CIP11000538

PATIENT
  Age: 57 Year
  Sex: Female

DRUGS (7)
  1. ACTONEL [Suspect]
     Dosage: 35 MG ONCE WEEKLY, ORAL
     Route: 048
     Dates: start: 20060915, end: 20080101
  2. ACTONEL [Suspect]
     Dosage: 150 MG , ORAL
     Route: 048
     Dates: start: 20081031
  3. PROCARDIA XL [Concomitant]
  4. ASPIRIN [Concomitant]
  5. MONOPRIL [Concomitant]
  6. CALCIUM +VIT D (CALCIUM, COLECALCIFEROL) [Concomitant]
  7. NASAREL /00456601/ (FLUNISOLIDE) [Concomitant]

REACTIONS (16)
  - TONGUE PARALYSIS [None]
  - SWELLING FACE [None]
  - GINGIVAL SWELLING [None]
  - HYPOPHAGIA [None]
  - LYMPHADENOPATHY [None]
  - ORAL INFECTION [None]
  - FACIAL PAIN [None]
  - ABSCESS ORAL [None]
  - CELLULITIS [None]
  - HAEMANGIOMA [None]
  - INTERVERTEBRAL DISC SPACE NARROWING [None]
  - FLUID INTAKE REDUCED [None]
  - TOOTH EXTRACTION [None]
  - EAR PAIN [None]
  - TONGUE OEDEMA [None]
  - POOR DENTAL CONDITION [None]
